FAERS Safety Report 5188299-8 (Version None)
Quarter: 2006Q4

REPORT INFORMATION
  Report Type: 
  Country: None (occurrence: None)
  Receive Date: 20061221
  Receipt Date: 20060309
  Transmission Date: 20070319
  Serious: Yes (Hospitalization)
  Sender: FDA-Public Use
  Company Number: DE-GLAXOSMITHKLINE-D0048969A

PATIENT
  Age: 23 Year
  Sex: Female
  Weight: 60 kg

DRUGS (4)
  1. LAMOTRIGINE [Suspect]
     Indication: BIPOLAR DISORDER
     Route: 048
     Dates: start: 20040101
  2. LITHIUM CARBONATE [Suspect]
     Route: 065
  3. FOLIC ACID [Concomitant]
     Dosage: 5MG IN THE MORNING
     Route: 065
     Dates: start: 20060221, end: 20060928
  4. ESCITALOPRAM OXALATE [Concomitant]
     Indication: DEPRESSION
     Dosage: 10MG PER DAY
     Route: 048
     Dates: start: 20050815, end: 20060221

REACTIONS (6)
  - COMPLICATION OF DELIVERY [None]
  - CONVERSION DISORDER [None]
  - DRUG EXPOSURE DURING PREGNANCY [None]
  - INTRA-UTERINE DEATH [None]
  - NAUSEA [None]
  - UTERINE HYPOTONUS [None]
